FAERS Safety Report 10086629 (Version 3)
Quarter: 2014Q2

REPORT INFORMATION
  Report Type: Spontaneous
  Country: DE (occurrence: DE)
  Receive Date: 20140418
  Receipt Date: 20140521
  Transmission Date: 20141212
  Serious: Yes (Hospitalization)
  Sender: FDA-Public Use
  Company Number: DE-PFIZER INC-2014109318

PATIENT
  Sex: Male

DRUGS (6)
  1. PANTOPRAZOLE [Suspect]
     Dosage: 40 MG, UNK
     Route: 065
  2. PANTOPRAZOLE [Suspect]
     Dosage: 80 MG, UNK
     Route: 065
  3. PANTOPRAZOLE [Suspect]
     Dosage: 40 MG, UNK
     Route: 065
  4. PANTOPRAZOLE [Suspect]
     Dosage: 20 MG, UNK
     Route: 065
  5. IBEROGAST [Concomitant]
     Dosage: TAKEN AS NEEDED
  6. METOCLOPRAMIDE [Concomitant]
     Dosage: TAKEN AS NEEDED

REACTIONS (5)
  - Appetite disorder [Not Recovered/Not Resolved]
  - Gastrooesophageal reflux disease [Unknown]
  - Retching [Unknown]
  - Irritable bowel syndrome [Recovering/Resolving]
  - Abdominal pain [Unknown]
